FAERS Safety Report 12448478 (Version 1)
Quarter: 2016Q2

REPORT INFORMATION
  Report Type: Spontaneous
  Country: ES (occurrence: ES)
  Receive Date: 20160608
  Receipt Date: 20160608
  Transmission Date: 20160815
  Serious: Yes (Other)
  Sender: FDA-Public Use
  Company Number: ES-EISAI MEDICAL RESEARCH-EC-2016-017441

PATIENT
  Age: 20 Year
  Sex: Male

DRUGS (3)
  1. OXCARBAZEPINA [Concomitant]
     Active Substance: OXCARBAZEPINE
     Indication: EPILEPSY
     Route: 048
     Dates: start: 20100310
  2. VALPROATO  CRONO [Concomitant]
     Indication: EPILEPSY
     Route: 048
     Dates: start: 20010101
  3. FYCOMPA [Suspect]
     Active Substance: PERAMPANEL
     Indication: GENERALISED NON-CONVULSIVE EPILEPSY
     Route: 048
     Dates: start: 20160429, end: 20160516

REACTIONS (1)
  - Aggression [Recovered/Resolved]

NARRATIVE: CASE EVENT DATE: 20160516
